FAERS Safety Report 5173214-3 (Version None)
Quarter: 2006Q4

REPORT INFORMATION
  Report Type: 
  Country: None (occurrence: None)
  Receive Date: 20061205
  Receipt Date: 20061115
  Transmission Date: 20070319
  Serious: Yes (Other)
  Sender: FDA-Public Use
  Company Number: S06-DEN-04949-01

PATIENT
  Age: 54 Year
  Weight: 90 kg

DRUGS (2)
  1. CIPRALEX(ESCITALOPRAM) [Suspect]
     Indication: DEPRESSION
     Dosage: 10 MG QD PO
     Route: 048
     Dates: start: 20060412, end: 20060413
  2. CIPRALEX (ESCITALOPRAM) [Suspect]
     Indication: DEPRESSION
     Dosage: 5 MG QD PO
     Route: 048
     Dates: start: 20060414, end: 20060417

REACTIONS (5)
  - CONVULSION [None]
  - DRY MOUTH [None]
  - GINGIVAL DISORDER [None]
  - HYPOAESTHESIA [None]
  - MOVEMENT DISORDER [None]
